FAERS Safety Report 21387384 (Version 1)
Quarter: 2022Q3

REPORT INFORMATION
  Report Type: Spontaneous
  Country: US (occurrence: None)
  Receive Date: 20220926
  Receipt Date: 20220926
  Transmission Date: 20221027
  Serious: Yes (Hospitalization)
  Sender: FDA-Public Use
  Company Number: None

PATIENT
  Age: 41 Year
  Sex: Female

DRUGS (1)
  1. ICATIBANT ACETATE [Suspect]
     Active Substance: ICATIBANT ACETATE
     Dosage: FREQUENCY : AS NEEDED;?
     Route: 058

REACTIONS (3)
  - Pharyngeal swelling [None]
  - Lip swelling [None]
  - Swollen tongue [None]

NARRATIVE: CASE EVENT DATE: 20220925
